FAERS Safety Report 4377004-0 (Version None)
Quarter: 2004Q2

REPORT INFORMATION
  Report Type: 
  Country: None (occurrence: None)
  Receive Date: 20040614
  Receipt Date: 20040520
  Transmission Date: 20050107
  Serious: Yes (Hospitalization)
  Sender: FDA-Public Use
  Company Number: US-BRISTOL-MYERS SQUIBB COMPANY-12592465

PATIENT
  Age: 53 Year
  Sex: Male

DRUGS (12)
  1. ERBITUX [Suspect]
     Indication: COLORECTAL CANCER METASTATIC
     Route: 042
     Dates: start: 20040505, end: 20040512
  2. IRINOTECAN [Suspect]
     Indication: COLORECTAL CANCER METASTATIC
     Route: 042
     Dates: start: 20040505, end: 20040505
  3. DICYCLOMINE [Concomitant]
     Route: 048
     Dates: start: 20040321
  4. HYOSCYAMINE [Concomitant]
     Route: 048
     Dates: start: 20040213
  5. IMODIUM [Concomitant]
     Route: 048
     Dates: start: 20040209
  6. FLEXERIL [Concomitant]
     Route: 048
     Dates: start: 20040318
  7. VITAMIN K TAB [Concomitant]
     Route: 048
     Dates: start: 20040331
  8. ZOLPIDEM [Concomitant]
     Route: 048
     Dates: start: 20040407
  9. DIPHENOXYLATE HCL + ATROPINE SULFATE [Concomitant]
     Route: 048
     Dates: start: 20040407
  10. OCTREOTIDE ACETATE [Concomitant]
     Route: 050
     Dates: start: 20040407, end: 20040407
  11. SIMETHICONE [Concomitant]
     Route: 048
     Dates: start: 20040301
  12. CYCLOBENZAPRINE [Concomitant]
     Route: 048
     Dates: start: 20040318

REACTIONS (4)
  - DIARRHOEA [None]
  - FEBRILE NEUTROPENIA [None]
  - HYPERGLYCAEMIA [None]
  - PHLEBOTHROMBOSIS [None]
